FAERS Safety Report 4751363-9 (Version None)
Quarter: 2005Q3

REPORT INFORMATION
  Report Type: 
  Country: None (occurrence: None)
  Receive Date: 20050823
  Receipt Date: 20050823
  Transmission Date: 20060218
  Serious: Yes (Life-Threatening)
  Sender: FDA-Public Use
  Company Number: None

PATIENT
  Age: 39 Year
  Sex: Female
  Weight: 74.8435 kg

DRUGS (2)
  1. STRATTERA [Suspect]
     Indication: DEPRESSION
     Dosage: 10 MGR - 3 - 18 MGR -4-25 MGR-4- 1 AT NIGHT PO
     Route: 048
     Dates: start: 20040801, end: 20040831
  2. STRATTERA [Suspect]
     Indication: DEPRESSION
     Dosage: 40 MGR 1 AT NIGHT PO
     Route: 048
     Dates: start: 20040901, end: 20050818

REACTIONS (5)
  - ABDOMINAL PAIN UPPER [None]
  - ALANINE AMINOTRANSFERASE ABNORMAL [None]
  - ASPARTATE AMINOTRANSFERASE ABNORMAL [None]
  - FATIGUE [None]
  - STRESS [None]
